FAERS Safety Report 23021817 (Version 1)
Quarter: 2023Q4

REPORT INFORMATION
  Report Type: Spontaneous
  Country: CN (occurrence: CN)
  Receive Date: 20231003
  Receipt Date: 20231003
  Transmission Date: 20240110
  Serious: Yes (Life-Threatening)
  Sender: FDA-Public Use
  Company Number: CN-PFIZER INC-PV202300160228

PATIENT
  Age: 50 Year
  Sex: Male
  Weight: 69 kg

DRUGS (3)
  1. SOLU-MEDROL [Suspect]
     Active Substance: METHYLPREDNISOLONE SODIUM SUCCINATE
     Indication: Myelitis
     Dosage: 40 MG, 1X/DAY
     Route: 041
     Dates: start: 20230901, end: 20230908
  2. METHYLPREDNISOLONE SODIUM SUCCINATE [Suspect]
     Active Substance: METHYLPREDNISOLONE SODIUM SUCCINATE
     Indication: Myelitis
     Dosage: 125 MG, 1X/DAY
     Route: 041
     Dates: start: 20230914, end: 20230918
  3. MANNITOL [Suspect]
     Active Substance: MANNITOL
     Indication: Myelitis
     Dosage: 100 ML, 2X/DAY
     Route: 041
     Dates: start: 20230901, end: 20230908

REACTIONS (2)
  - Hypokalaemia [Unknown]
  - Off label use [Unknown]

NARRATIVE: CASE EVENT DATE: 20230918
